FAERS Safety Report 7432466-7 (Version None)
Quarter: 2011Q2

REPORT INFORMATION
  Report Type: 
  Country: None (occurrence: None)
  Receive Date: 20110422
  Receipt Date: 20110412
  Transmission Date: 20111010
  Serious: Yes (Other)
  Sender: FDA-Public Use
  Company Number: US-ENDO PHARMACEUTICALS INC.-OPER20110088

PATIENT
  Sex: Male
  Weight: 61.29 kg

DRUGS (2)
  1. DURAGESIC [Concomitant]
     Indication: PAIN
     Route: 061
  2. OPANA ER [Suspect]
     Indication: BACK PAIN
     Route: 048

REACTIONS (2)
  - DRUG INEFFECTIVE [None]
  - INTENTIONAL DRUG MISUSE [None]
